FAERS Safety Report 9732110 (Version 1)
Quarter: 2013Q4

REPORT INFORMATION
  Report Type: Spontaneous
  Country: US (occurrence: None)
  Receive Date: 20131203
  Receipt Date: 20131203
  Transmission Date: 20140711
  Serious: Yes (Death, Hospitalization)
  Sender: FDA-Public Use
  Company Number: US-ALKEM-000286

PATIENT
  Age: 86 Year
  Sex: Female

DRUGS (5)
  1. AMLODIPINE (AMLODIPINE) [Suspect]
     Route: 048
  2. METFORMIN (METFORMIN) [Suspect]
     Route: 048
  3. ACETAMINOPHEN (ACETAMINOPHEN) [Suspect]
     Route: 048
  4. ATENOLOL (ATENOLOL) [Suspect]
     Route: 048
  5. VALSARTAN/HYDROCHLOROTHIAZIDE [Suspect]
     Route: 048

REACTIONS (2)
  - Overdose [None]
  - Completed suicide [None]
